FAERS Safety Report 24642602 (Version 2)
Quarter: 2024Q4

REPORT INFORMATION
  Report Type: Spontaneous
  Country: US (occurrence: US)
  Receive Date: 20241120
  Receipt Date: 20241212
  Transmission Date: 20250114
  Serious: No
  Sender: MYLAN
  Company Number: US-MYLANLABS-2024M1100265

PATIENT
  Sex: Male
  Weight: 102.06 kg

DRUGS (1)
  1. EPINEPHRINE [Suspect]
     Active Substance: EPINEPHRINE
     Indication: Arthropod sting
     Dosage: UNK
     Route: 065

REACTIONS (3)
  - Liquid product physical issue [None]
  - Product packaging issue [None]
  - Product quality issue [None]

NARRATIVE: CASE EVENT DATE: 20240101
